FAERS Safety Report 5465214-0 (Version None)
Quarter: 2007Q3

REPORT INFORMATION
  Report Type: 
  Country: None (occurrence: None)
  Receive Date: 20070919
  Receipt Date: 20070919
  Transmission Date: 20080115
  Serious: No
  Sender: FDA-Public Use
  Company Number: None

PATIENT
  Sex: Female
  Weight: 54.1 kg

DRUGS (2)
  1. TEMOZOLOMIDE [Suspect]
     Dosage: 5060 MG
  2. BACTRIM [Concomitant]

REACTIONS (1)
  - LYMPHOCYTE COUNT ABNORMAL [None]
